FAERS Safety Report 18488985 (Version 3)
Quarter: 2021Q1

REPORT INFORMATION
  Report Type: Spontaneous
  Country: US (occurrence: US)
  Receive Date: 20201110
  Receipt Date: 20210122
  Transmission Date: 20210419
  Serious: Yes (Other)
  Sender: FDA-Public Use
  Company Number: US-009507513-2011USA003046

PATIENT
  Age: 70 Year
  Sex: Male

DRUGS (2)
  1. KEYTRUDA [Suspect]
     Active Substance: PEMBROLIZUMAB
     Indication: LUNG ADENOCARCINOMA
     Dosage: 200 MILLIGRAM, Q3W FOR 7 CYCLES
     Dates: start: 20180705, end: 20181130
  2. NIVOLUMAB [Concomitant]
     Active Substance: NIVOLUMAB
     Indication: LUNG ADENOCARCINOMA
     Dosage: ONE CYCLE; 28 DAYS CYCLE
     Dates: start: 20180604

REACTIONS (3)
  - Rheumatoid vasculitis [Recovering/Resolving]
  - Interstitial lung disease [Recovering/Resolving]
  - Cardiac failure acute [Recovering/Resolving]
